FAERS Safety Report 18724367 (Version 2)
Quarter: 2021Q1

REPORT INFORMATION
  Report Type: Spontaneous
  Country: US (occurrence: US)
  Receive Date: 20210111
  Receipt Date: 20210308
  Transmission Date: 20210419
  Serious: No
  Sender: FDA-Public Use
  Company Number: US-PFIZER INC-2020441436

PATIENT
  Age: 68 Year
  Sex: Female

DRUGS (14)
  1. DOCETAXEL SANOFI?AVENTIS [Suspect]
     Active Substance: DOCETAXEL
     Indication: BREAST CANCER FEMALE
     Dosage: 157 MG, SINGLE (FIRST CYCLE)
     Dates: start: 20131217, end: 20131217
  2. CRESTOR [Concomitant]
     Active Substance: ROSUVASTATIN CALCIUM
     Dosage: 5 MG
     Dates: start: 20110330, end: 20121227
  3. DOCETAXEL SANOFI?AVENTIS [Suspect]
     Active Substance: DOCETAXEL
     Dosage: 150 MG, SINGLE (THIRD CYCLE)
     Dates: start: 20140203, end: 20140203
  4. DOCETAXEL SANOFI?AVENTIS [Suspect]
     Active Substance: DOCETAXEL
     Dosage: 156.8 MG, SINGLE (FOURTH CYCLE)
     Dates: start: 20140303, end: 20140303
  5. DOCETAXEL. [Suspect]
     Active Substance: DOCETAXEL
     Dosage: 150 MG, SINGLE (THIRD CYCLE)
     Dates: start: 20140203, end: 20140203
  6. DOCETAXEL SANOFI?AVENTIS [Suspect]
     Active Substance: DOCETAXEL
     Dosage: 156.8 MG, SINGLE (SECOND CYCLE)
     Dates: start: 20140113, end: 20140113
  7. FEMARA [Concomitant]
     Active Substance: LETROZOLE
     Indication: HORMONE THERAPY
     Dosage: 2.5 MG
     Dates: start: 20140512, end: 20140811
  8. DOCETAXEL. [Suspect]
     Active Substance: DOCETAXEL
     Dosage: 156.8 MG, SINGLE (SECOND CYCLE)
     Dates: start: 20140113, end: 20140113
  9. NEOSAR [Concomitant]
     Active Substance: CYCLOPHOSPHAMIDE
     Indication: CHEMOTHERAPY
     Dosage: 1200 MG
  10. CRESTOR [Concomitant]
     Active Substance: ROSUVASTATIN CALCIUM
     Dosage: 5 MG
     Dates: start: 20130214, end: 20140214
  11. TAXOTERE [Concomitant]
     Active Substance: DOCETAXEL
     Indication: CHEMOTHERAPY
     Dosage: UNK
  12. CYTOXAN [Concomitant]
     Active Substance: CYCLOPHOSPHAMIDE
     Indication: CHEMOTHERAPY
     Dosage: 1200 MG
     Dates: start: 20131217, end: 20140303
  13. DOCETAXEL. [Suspect]
     Active Substance: DOCETAXEL
     Indication: BREAST CANCER FEMALE
     Dosage: 157 MG, SINGLE (FIRST CYCLE)
     Dates: start: 20131217, end: 20131217
  14. DOCETAXEL. [Suspect]
     Active Substance: DOCETAXEL
     Dosage: 156.8 MG, SINGLE (FOURTH CYCLE)
     Dates: start: 20140303, end: 20140303

REACTIONS (6)
  - Alopecia [Not Recovered/Not Resolved]
  - Hair colour changes [Not Recovered/Not Resolved]
  - Depression [Unknown]
  - Hair disorder [Not Recovered/Not Resolved]
  - Hair texture abnormal [Not Recovered/Not Resolved]
  - Madarosis [Not Recovered/Not Resolved]

NARRATIVE: CASE EVENT DATE: 20140115
